FAERS Safety Report 10244715 (Version 2)
Quarter: 2014Q2

REPORT INFORMATION
  Report Type: Spontaneous
  Country: US (occurrence: US)
  Receive Date: 20140618
  Receipt Date: 20140618
  Transmission Date: 20141212
  Serious: Yes (Life-Threatening, Hospitalization)
  Sender: FDA-Public Use
  Company Number: US-JNJFOC-20140513905

PATIENT
  Age: 38 Year
  Sex: Male
  Weight: 68.04 kg

DRUGS (13)
  1. REMICADE [Suspect]
     Indication: COLITIS ULCERATIVE
     Dosage: SECOND INFUSION
     Route: 042
     Dates: start: 20140516
  2. REMICADE [Suspect]
     Indication: COLITIS ULCERATIVE
     Route: 042
     Dates: start: 20140502, end: 20140502
  3. REMICADE [Suspect]
     Indication: COLITIS ULCERATIVE
     Dosage: EVERY 8 WEEKS AFTER INDUCTION 0,2,4 WEEKS
     Route: 042
     Dates: start: 20140502, end: 20140516
  4. REMICADE [Suspect]
     Indication: COLITIS ULCERATIVE
     Dosage: 1 YEAR PRIOR TO THE DATE OF THIS REPORT
     Route: 042
     Dates: start: 200711, end: 200801
  5. SULFASALAZINE [Concomitant]
     Route: 065
  6. PREDNISONE [Concomitant]
     Route: 065
  7. LOMOTIL [Concomitant]
     Dosage: 25 MG-0.025MG
     Route: 065
  8. WELLBUTRIN [Concomitant]
     Dosage: 25 MG-0.025MG
     Route: 065
  9. MULTIVITAMINS [Concomitant]
     Dosage: 25 MG-0.025MG
     Route: 065
  10. IRON [Concomitant]
     Dosage: 25 MG-0.025MG
     Route: 065
  11. MILK THISTLE [Concomitant]
     Dosage: 25 MG-0.025MG
     Route: 065
  12. BENADRYL [Concomitant]
     Indication: PREMEDICATION
     Route: 042
     Dates: start: 20140516
  13. SOLUCORTEF [Concomitant]
     Indication: PREMEDICATION
     Route: 042
     Dates: start: 20140516

REACTIONS (9)
  - Oropharyngeal pain [Recovered/Resolved]
  - Dyspnoea [Recovered/Resolved]
  - Dysphagia [Recovered/Resolved]
  - Throat tightness [Recovered/Resolved]
  - Wheezing [Recovered/Resolved]
  - Urticaria [Recovered/Resolved]
  - Tachycardia [Recovered/Resolved]
  - Infusion related reaction [Recovered/Resolved]
  - Drug specific antibody present [Unknown]
